FAERS Safety Report 9832994 (Version 1)
Quarter: 2014Q1

REPORT INFORMATION
  Report Type: Spontaneous
  Country: BE (occurrence: BE)
  Receive Date: 20140121
  Receipt Date: 20140121
  Transmission Date: 20141002
  Serious: Yes (Death, Other)
  Sender: FDA-Public Use
  Company Number: BE-ROXANE LABORATORIES, INC.-2014-RO-00050RO

PATIENT
  Age: 69 Year
  Sex: Male

DRUGS (12)
  1. FLUCONAZOLE [Suspect]
     Indication: CANDIDA INFECTION
     Dosage: 800 MG
  2. FLUCONAZOLE [Suspect]
     Dosage: 400 MG
  3. VORICONAZOLE [Suspect]
     Indication: CANDIDA INFECTION
     Dosage: 400 MG
  4. DIGOXINE [Concomitant]
     Dosage: 0.25 MG
  5. MOLSIDOMINE [Concomitant]
     Dosage: 16 MG
  6. ALTIZIDE [Concomitant]
     Dosage: 15 MG
  7. SPIRONOLACTON [Concomitant]
     Dosage: 25 MG
  8. AMITRIPTYLINE [Concomitant]
     Dosage: 100 MG
  9. TRAMADOL [Concomitant]
     Dosage: 50 MG
  10. INSULIN [Concomitant]
     Indication: DIABETES MELLITUS
  11. SALMETEROL/FLUTICASON [Concomitant]
     Indication: CHRONIC OBSTRUCTIVE PULMONARY DISEASE
     Route: 055
  12. FENOTEROL-IPRATROPIUM [Concomitant]
     Indication: CHRONIC OBSTRUCTIVE PULMONARY DISEASE
     Route: 055

REACTIONS (2)
  - Bacterial sepsis [Fatal]
  - Treatment failure [Unknown]
